FAERS Safety Report 4743603-7 (Version None)
Quarter: 2005Q3

REPORT INFORMATION
  Report Type: 
  Country: None (occurrence: None)
  Receive Date: 20050812
  Receipt Date: 20050803
  Transmission Date: 20060218
  Serious: Yes (Hospitalization)
  Sender: FDA-Public Use
  Company Number: 200512369EU

PATIENT
  Age: 52 Year
  Sex: Male

DRUGS (6)
  1. SEGURIL [Suspect]
     Indication: CHRONIC HEPATITIS
     Route: 048
     Dates: start: 20050701, end: 20050713
  2. ALDACTONE [Suspect]
     Indication: CHRONIC HEPATITIS
     Route: 048
     Dates: start: 20050701, end: 20050713
  3. SOLGOL [Concomitant]
     Indication: PROPHYLAXIS
     Route: 048
  4. LACTULOSE [Concomitant]
     Indication: CONSTIPATION
     Route: 048
  5. CORONUR [Concomitant]
     Indication: PROPHYLAXIS
     Route: 048
  6. MIXTARD HUMAN 70/30 [Concomitant]
     Indication: DIABETES MELLITUS
     Dosage: DOSE: 100UI/10ML
     Route: 058

REACTIONS (1)
  - ENCEPHALOPATHY [None]
